FAERS Safety Report 21547191 (Version 1)
Quarter: 2022Q4

REPORT INFORMATION
  Report Type: Other
  Country: GB (occurrence: GB)
  Receive Date: 20221103
  Receipt Date: 20221103
  Transmission Date: 20230113
  Serious: Yes (Disabling, Other)
  Sender: FDA-Public Use
  Company Number: GB-MHRA-MED-202210101151320790-SNGCM

PATIENT
  Age: 67 Year
  Sex: Female
  Weight: 57 kg

DRUGS (12)
  1. SERTRALINE [Suspect]
     Active Substance: SERTRALINE HYDROCHLORIDE
     Indication: Anxiety
     Dosage: 50 MILLIGRAM, AT TEATIME
     Route: 048
     Dates: start: 20211223
  2. SERTRALINE [Suspect]
     Active Substance: SERTRALINE HYDROCHLORIDE
     Dosage: 50 MILLIGRAM
     Route: 048
     Dates: start: 202201, end: 20220918
  3. BEMPEDOIC ACID [Concomitant]
     Active Substance: BEMPEDOIC ACID
     Indication: Blood cholesterol increased
     Dosage: UNK
     Route: 065
  4. BISOPROLOL [Concomitant]
     Active Substance: BISOPROLOL
     Indication: Hypertension
     Dosage: 5 MILLIGRAM
     Route: 048
  5. CHOLECALCIFEROL [Concomitant]
     Active Substance: CHOLECALCIFEROL
     Indication: Vitamin D deficiency
     Dosage: UNK
     Route: 065
  6. GAVISCON ADVANCED [Concomitant]
     Indication: Gastrooesophageal reflux disease
     Dosage: UNK
     Route: 065
  7. LEVOTHYROXINE [Concomitant]
     Active Substance: LEVOTHYROXINE
     Indication: Hypothyroidism
     Dosage: 75 MILLIGRAM
     Route: 048
  8. METFORMIN [Concomitant]
     Active Substance: METFORMIN HYDROCHLORIDE
     Indication: Type 2 diabetes mellitus
     Dosage: 500 MILLIGRAM
     Route: 048
  9. NITROLINGUAL [Concomitant]
     Active Substance: NITROGLYCERIN
     Indication: Angina pectoris
     Dosage: 400 MILLIGRAM
     Route: 065
  10. OMEPRAZOLE [Concomitant]
     Active Substance: OMEPRAZOLE
     Indication: Barrett^s oesophagus
     Dosage: 40 MILLIGRAM
     Route: 065
  11. ACETAMINOPHEN [Concomitant]
     Active Substance: ACETAMINOPHEN
     Indication: Osteoarthritis
     Dosage: 500 MILLIGRAM
     Route: 048
  12. SPIRONOLACTONE [Concomitant]
     Active Substance: SPIRONOLACTONE
     Indication: Hypertension
     Dosage: UNK
     Route: 065

REACTIONS (3)
  - Condition aggravated [Not Recovered/Not Resolved]
  - Diarrhoea [Unknown]
  - Medication error [Not Recovered/Not Resolved]

NARRATIVE: CASE EVENT DATE: 20211001
